FAERS Safety Report 10667065 (Version 1)
Quarter: 2014Q4

REPORT INFORMATION
  Report Type: Spontaneous
  Country: None (occurrence: None)
  Receive Date: 20141219
  Receipt Date: 20141219
  Transmission Date: 20150529
  Serious: Yes (Other)
  Sender: FDA-Public Use
  Company Number: None

PATIENT
  Age: 7 Year
  Sex: Male
  Weight: 24.95 kg

DRUGS (1)
  1. TAMIFLU [Suspect]
     Active Substance: OSELTAMIVIR PHOSPHATE
     Indication: INFLUENZA
     Dosage: ONCE A DAY SYRUP  ONCE DAILY
     Dates: start: 20141217, end: 20141218

REACTIONS (3)
  - Screaming [None]
  - Hallucination [None]
  - Fear [None]

NARRATIVE: CASE EVENT DATE: 20141218
